FAERS Safety Report 23782410 (Version 1)
Quarter: 2024Q2

REPORT INFORMATION
  Report Type: Spontaneous
  Country: MX (occurrence: MX)
  Receive Date: 20240425
  Receipt Date: 20240425
  Transmission Date: 20240715
  Serious: Yes (Other)
  Sender: FDA-Public Use
  Company Number: MX-SUN PHARMACEUTICAL INDUSTRIES LTD-2024R1-442779

PATIENT
  Age: 46 Year
  Sex: Female

DRUGS (3)
  1. FUROSEMIDE [Suspect]
     Active Substance: FUROSEMIDE
     Indication: Varices oesophageal
     Dosage: UNK
     Route: 065
  2. PROPRANOLOL [Suspect]
     Active Substance: PROPRANOLOL HYDROCHLORIDE
     Indication: Varices oesophageal
     Dosage: UNK
     Route: 065
  3. SPIRONOLACTONE [Suspect]
     Active Substance: SPIRONOLACTONE
     Indication: Varices oesophageal
     Dosage: UNK
     Route: 065

REACTIONS (1)
  - Condition aggravated [Unknown]
